FAERS Safety Report 6834072-1 (Version None)
Quarter: 2010Q3

REPORT INFORMATION
  Report Type: 
  Country: None (occurrence: None)
  Receive Date: 20100712
  Receipt Date: 20070406
  Transmission Date: 20110219
  Serious: No
  Sender: FDA-Public Use
  Company Number: US-PFIZER INC-2007029313

PATIENT
  Sex: Male
  Weight: 90.72 kg

DRUGS (8)
  1. CHANTIX [Suspect]
     Indication: SMOKING CESSATION THERAPY
     Dates: start: 20070404, end: 20070404
  2. ESTRADIOL [Concomitant]
  3. FOSAMAX [Concomitant]
  4. PROPECIA [Concomitant]
  5. CYCLOBENZAPRINE [Concomitant]
  6. ATIVAN [Concomitant]
  7. CETIRIZINE HCL AND PSEUDOEPHEDRINE [Concomitant]
  8. NICOTINE [Concomitant]
     Indication: SMOKING CESSATION THERAPY

REACTIONS (1)
  - RASH [None]
